FAERS Safety Report 5445133-6 (Version None)
Quarter: 2007Q3

REPORT INFORMATION
  Report Type: 
  Country: None (occurrence: None)
  Receive Date: 20070906
  Receipt Date: 20070825
  Transmission Date: 20080115
  Serious: Yes (Other)
  Sender: FDA-Public Use
  Company Number: US-PFIZER INC-2007071379

PATIENT
  Sex: Female
  Weight: 68.181 kg

DRUGS (3)
  1. LYRICA [Suspect]
     Indication: PAIN
  2. ANTIHYPERTENSIVES [Concomitant]
  3. CHOLESTEROL- AND TRIGLYCERIDE REDUCERS [Concomitant]

REACTIONS (1)
  - SURGERY [None]
